FAERS Safety Report 4818186-3 (Version None)
Quarter: 2005Q4

REPORT INFORMATION
  Report Type: 
  Country: None (occurrence: None)
  Receive Date: 20051031
  Receipt Date: 20051031
  Transmission Date: 20060501
  Serious: Yes (Hospitalization)
  Sender: FDA-Public Use
  Company Number: None

PATIENT
  Age: 72 Year
  Sex: Male
  Weight: 91.6266 kg

DRUGS (2)
  1. GLYBURIDE [Suspect]
     Dosage: 1.5MG AT NOON, 3MG Q PM
  2. PIOGLITAZONE HCL [Suspect]
     Dosage: 30 MG QD

REACTIONS (2)
  - DRUG INTOLERANCE [None]
  - HYPOGLYCAEMIA [None]
